FAERS Safety Report 15690830 (Version 2)
Quarter: 2018Q4

REPORT INFORMATION
  Report Type: Spontaneous
  Country: US (occurrence: US)
  Receive Date: 20181205
  Receipt Date: 20181219
  Transmission Date: 20190205
  Serious: Yes (Other)
  Sender: FDA-Public Use
  Company Number: US-SA-2018SA327664

PATIENT
  Age: 58 Year
  Sex: Female
  Weight: 76 kg

DRUGS (9)
  1. TAXOTERE [Suspect]
     Active Substance: DOCETAXEL
     Dosage: UNK UNK, UNK
     Route: 042
     Dates: start: 20091022, end: 20091022
  2. DECADRON [DEXAMETHASONE ACETATE] [Concomitant]
     Dosage: 10 UNK
     Route: 042
  3. ALOXI [Concomitant]
     Active Substance: PALONOSETRON HYDROCHLORIDE
     Dosage: 0.25 MG
     Route: 042
  4. ATIVAN [Concomitant]
     Active Substance: LORAZEPAM
     Dosage: 1 MG
     Route: 048
  5. ZOFRAN [ONDANSETRON HYDROCHLORIDE] [Concomitant]
     Dosage: 16 MG, UNK
     Route: 042
  6. CYTOXAN [Concomitant]
     Active Substance: CYCLOPHOSPHAMIDE
     Dosage: 1068 MG
     Route: 042
  7. EMEND [Concomitant]
     Active Substance: APREPITANT
     Dosage: 125 MG
     Route: 048
  8. DECADRON [DEXAMETHASONE ACETATE] [Concomitant]
     Dosage: 4 MG, BID
     Route: 048
  9. TAXOTERE [Suspect]
     Active Substance: DOCETAXEL
     Dosage: UNK UNK, UNK
     Route: 042
     Dates: start: 20091230, end: 20091230

REACTIONS (1)
  - Alopecia [Not Recovered/Not Resolved]
